FAERS Safety Report 7767438-6 (Version None)
Quarter: 2011Q3

REPORT INFORMATION
  Report Type: 
  Country: None (occurrence: None)
  Receive Date: 20110922
  Receipt Date: 20110620
  Transmission Date: 20111222
  Serious: No
  Sender: FDA-Public Use
  Company Number: US-ASTRAZENECA-2011SE18210

PATIENT
  Age: 40 Year
  Sex: Female

DRUGS (8)
  1. LAMICTAL [Concomitant]
     Indication: AFFECTIVE DISORDER
     Route: 048
     Dates: start: 20010224
  2. CELEXA [Concomitant]
  3. SEROQUEL XR [Suspect]
     Indication: BIPOLAR DISORDER
     Route: 048
     Dates: start: 20110324, end: 20110330
  4. ATENOLOL [Suspect]
     Route: 048
  5. XANAX [Concomitant]
     Dosage: BID FREQUENCY
  6. IMITREX [Concomitant]
  7. TOPAMAX [Concomitant]
  8. SEROQUEL XR [Suspect]
     Indication: AFFECTIVE DISORDER
     Route: 048
     Dates: start: 20110324, end: 20110330

REACTIONS (5)
  - PANIC ATTACK [None]
  - THERAPEUTIC RESPONSE UNEXPECTED [None]
  - DRUG HYPERSENSITIVITY [None]
  - HALLUCINATION, AUDITORY [None]
  - NO ADVERSE EVENT [None]
